FAERS Safety Report 6903732-6 (Version None)
Quarter: 2010Q3

REPORT INFORMATION
  Report Type: 
  Country: None (occurrence: None)
  Receive Date: 20100804
  Receipt Date: 20081124
  Transmission Date: 20110219
  Serious: No
  Sender: FDA-Public Use
  Company Number: US-PFIZER INC-2008091516

PATIENT
  Sex: Female

DRUGS (5)
  1. LYRICA [Suspect]
  2. ZETIA [Concomitant]
  3. PLENDIL [Concomitant]
  4. PREVACID [Concomitant]
  5. ZANTAC [Concomitant]

REACTIONS (3)
  - DIZZINESS [None]
  - NAUSEA [None]
  - SOMNOLENCE [None]
